FAERS Safety Report 12138770 (Version 2)
Quarter: 2016Q1

REPORT INFORMATION
  Report Type: Report from Study
  Country: US (occurrence: US)
  Receive Date: 20160302
  Receipt Date: 20160325
  Transmission Date: 20160526
  Serious: Yes (Other)
  Sender: FDA-Public Use
  Company Number: US-ABBVIE-16P-163-1568821-00

PATIENT
  Sex: Female

DRUGS (2)
  1. LUPRON DEPOT [Suspect]
     Active Substance: LEUPROLIDE ACETATE
     Indication: ENDOMETRIOSIS
     Route: 065
     Dates: start: 2009, end: 2009
  2. NEXPLANON [Suspect]
     Active Substance: ETONOGESTREL
     Indication: ENDOMETRIOSIS
     Route: 065
     Dates: end: 201602

REACTIONS (7)
  - Endometriosis [Recovered/Resolved]
  - Cartilage injury [Unknown]
  - Lower limb fracture [Recovered/Resolved]
  - Weight increased [Not Recovered/Not Resolved]
  - Pelvic pain [Recovering/Resolving]
  - Hot flush [Recovered/Resolved]
  - Endometriosis [Not Recovered/Not Resolved]

NARRATIVE: CASE EVENT DATE: 2009
